FAERS Safety Report 7770219-0 (Version None)
Quarter: 2011Q3

REPORT INFORMATION
  Report Type: 
  Country: None (occurrence: None)
  Receive Date: 20110922
  Receipt Date: 20110412
  Transmission Date: 20111222
  Serious: No
  Sender: FDA-Public Use
  Company Number: US-ASTRAZENECA-2011SE21597

PATIENT
  Age: 40 Year
  Sex: Male

DRUGS (8)
  1. SEROQUEL [Suspect]
     Route: 048
  2. SEROQUEL [Suspect]
     Indication: BIPOLAR DISORDER
     Route: 048
  3. LITHIUM CARBONATE [Concomitant]
  4. TRAZODONE HYDROCHLORIDE [Concomitant]
  5. SEROQUEL [Suspect]
     Route: 048
  6. DEPAKOTE [Concomitant]
  7. CODONE [Concomitant]
  8. RISPERDAL [Concomitant]

REACTIONS (4)
  - INSOMNIA [None]
  - DRUG DOSE OMISSION [None]
  - DYSSOMNIA [None]
  - SLEEP DISORDER [None]
